FAERS Safety Report 15573129 (Version 2)
Quarter: 2018Q4

REPORT INFORMATION
  Report Type: Spontaneous
  Country: US (occurrence: US)
  Receive Date: 20181101
  Receipt Date: 20181102
  Transmission Date: 20190205
  Serious: No
  Sender: FDA-Public Use
  Company Number: US-SA-2018SA299247

PATIENT
  Age: 8 Year
  Sex: Male

DRUGS (1)
  1. ACT KIDS ANTICAVITY FLUORIDE FRUIT PUNCH [Suspect]
     Active Substance: SODIUM FLUORIDE
     Indication: PRODUCT USED FOR UNKNOWN INDICATION

REACTIONS (2)
  - Burning sensation [Unknown]
  - Dysgeusia [Unknown]
